FAERS Safety Report 8419199-5 (Version None)
Quarter: 2012Q2

REPORT INFORMATION
  Report Type: 
  Country: None (occurrence: None)
  Receive Date: 20120607
  Receipt Date: 20120528
  Transmission Date: 20120825
  Serious: Yes (Other)
  Sender: FDA-Public Use
  Company Number: JP-JNJFOC-20111209726

PATIENT
  Sex: Male
  Weight: 70 kg

DRUGS (8)
  1. REMICADE [Suspect]
     Route: 042
     Dates: start: 20090305
  2. SILECE [Concomitant]
     Indication: INSOMNIA
  3. REMICADE [Suspect]
     Indication: BEHCET'S SYNDROME
     Dosage: 15 DOCUMENTED INFUSIONS
     Route: 042
     Dates: start: 20101104
  4. COLCHICINE [Concomitant]
  5. COLCHICINE [Concomitant]
     Indication: BEHCET'S SYNDROME
     Dates: start: 20081120
  6. REMICADE [Suspect]
     Route: 042
     Dates: start: 20081128
  7. ISONIAZID [Concomitant]
  8. ANTIHISTAMINE [Concomitant]
     Indication: PREMEDICATION
     Dates: start: 20081128, end: 20101104

REACTIONS (2)
  - ECZEMA [None]
  - GLAUCOMA [None]
